FAERS Safety Report 13646889 (Version 1)
Quarter: 2017Q2

REPORT INFORMATION
  Report Type: Spontaneous
  Country: US (occurrence: US)
  Receive Date: 20170613
  Receipt Date: 20170613
  Transmission Date: 20170830
  Serious: No
  Sender: FDA-Public Use
  Company Number: None

PATIENT
  Age: 73 Year
  Sex: Female
  Weight: 53.57 kg

DRUGS (6)
  1. FLUOXETINE [Concomitant]
     Active Substance: FLUOXETINE HYDROCHLORIDE
  2. LEVOFLOXACIN. [Suspect]
     Active Substance: LEVOFLOXACIN
     Indication: BRONCHITIS
     Dosage: 500 MG 1 PILL ONCE EARLY MORN MOUTH
     Route: 048
     Dates: start: 20170124, end: 20170203
  3. ATORVASTATIN [Concomitant]
     Active Substance: ATORVASTATIN
  4. TOPIRAMATE. [Concomitant]
     Active Substance: TOPIRAMATE
  5. EXCEDRIN [Concomitant]
     Active Substance: ACETAMINOPHEN\ASPIRIN\CAFFEINE
  6. CLOPIDOGREL [Concomitant]
     Active Substance: CLOPIDOGREL BISULFATE

REACTIONS (4)
  - Dyspnoea [None]
  - Dizziness [None]
  - Foetal heart rate decreased [None]
  - Decreased appetite [None]
